FAERS Safety Report 13185525 (Version 3)
Quarter: 2017Q1

REPORT INFORMATION
  Report Type: Spontaneous
  Country: FR (occurrence: FR)
  Receive Date: 20170203
  Receipt Date: 20170331
  Transmission Date: 20170428
  Serious: Yes (Congenital Anomaly)
  Sender: FDA-Public Use
  Company Number: FR-PFIZER INC-2017041551

PATIENT
  Sex: Male
  Weight: 2.96 kg

DRUGS (2)
  1. CYTOTEC [Suspect]
     Active Substance: MISOPROSTOL
     Indication: ABORTION INDUCED
     Dosage: 3 DF, SINGLE (600 ?G TOTAL)
     Route: 064
     Dates: start: 2013, end: 2013
  2. MIFEGYNE [Suspect]
     Active Substance: MIFEPRISTONE
     Indication: ABORTION INDUCED
     Dosage: 600 MG, UNK (TOTAL)
     Route: 064
     Dates: start: 2013, end: 2013

REACTIONS (5)
  - Moebius II syndrome [Unknown]
  - Maternal exposure during pregnancy [Unknown]
  - Cleft palate [Unknown]
  - Retrognathia [Unknown]
  - Pierre Robin syndrome [Unknown]

NARRATIVE: CASE EVENT DATE: 2013
